FAERS Safety Report 24052443 (Version 2)
Quarter: 2024Q3

REPORT INFORMATION
  Report Type: Report from Study
  Country: IT (occurrence: IT)
  Receive Date: 20240704
  Receipt Date: 20240729
  Transmission Date: 20241017
  Serious: Yes (Hospitalization)
  Sender: ABBVIE
  Company Number: IT-ABBVIE-5826062

PATIENT
  Age: 12 Year
  Sex: Male
  Weight: 54.7 kg

DRUGS (1)
  1. UPADACITINIB [Suspect]
     Active Substance: UPADACITINIB
     Indication: Colitis ulcerative
     Dosage: 45 MILLIGRAM
     Route: 048
     Dates: start: 20240507, end: 20240611

REACTIONS (1)
  - Stoma creation [Recovered/Resolved]

NARRATIVE: CASE EVENT DATE: 20240601
